FAERS Safety Report 4663229-3 (Version None)
Quarter: 2005Q2

REPORT INFORMATION
  Report Type: 
  Country: None (occurrence: None)
  Receive Date: 20050512
  Receipt Date: 20050505
  Transmission Date: 20051028
  Serious: Yes (Death)
  Sender: FDA-Public Use
  Company Number: GXBR2005US00857

PATIENT
  Age: 77 Year
  Sex: Male

DRUGS (4)
  1. TEMAZEPAM CAPSULES USP (NGX) (TEMAZEPAM) CAPSULE [Suspect]
     Indication: INSOMNIA
     Dosage: 15 MG, QHS, ORAL
     Route: 048
     Dates: end: 20050314
  2. BENICAR [Concomitant]
  3. ZANTAC [Concomitant]
  4. CLONIDINE [Concomitant]

REACTIONS (6)
  - COMPLETED SUICIDE [None]
  - DRUG ABUSER [None]
  - DRUG WITHDRAWAL SYNDROME [None]
  - GUN SHOT WOUND [None]
  - HALLUCINATION, VISUAL [None]
  - RESTLESSNESS [None]
